FAERS Safety Report 11359785 (Version 6)
Quarter: 2015Q3

REPORT INFORMATION
  Report Type: Spontaneous
  Country: US (occurrence: US)
  Receive Date: 20150809
  Receipt Date: 20150817
  Transmission Date: 20151125
  Serious: Yes (Hospitalization, Other)
  Sender: FDA-Public Use
  Company Number: US-DRREDDYS-USA/USA/15/0049805

PATIENT
  Sex: Female

DRUGS (1)
  1. HABITROL [Suspect]
     Active Substance: NICOTINE
     Indication: SMOKING CESSATION THERAPY
     Route: 062
     Dates: start: 20150704

REACTIONS (8)
  - Mass [Recovering/Resolving]
  - Hyponatraemia [Recovered/Resolved]
  - Small cell lung cancer [Unknown]
  - Dysgeusia [Recovered/Resolved]
  - Oesophageal carcinoma [Unknown]
  - Nicotine dependence [Recovering/Resolving]
  - Dehydration [Recovered/Resolved]
  - Fatigue [Recovered/Resolved]
